FAERS Safety Report 18262943 (Version 1)
Quarter: 2020Q3

REPORT INFORMATION
  Report Type: Spontaneous
  Country: US (occurrence: US)
  Receive Date: 20200914
  Receipt Date: 20200914
  Transmission Date: 20201103
  Serious: No
  Sender: FDA-Public Use
  Company Number: US-009507513-2009USA003951

PATIENT
  Sex: Male

DRUGS (1)
  1. KEYTRUDA [Suspect]
     Active Substance: PEMBROLIZUMAB
     Indication: SQUAMOUS CELL CARCINOMA OF HEAD AND NECK
     Dosage: UNK
     Route: 042
     Dates: start: 2019

REACTIONS (4)
  - Lichen planus [Recovering/Resolving]
  - Mucosal inflammation [Recovering/Resolving]
  - Dysphagia [Recovering/Resolving]
  - Weight decreased [Recovering/Resolving]
